FAERS Safety Report 4646173-7 (Version None)
Quarter: 2005Q2

REPORT INFORMATION
  Report Type: 
  Country: None (occurrence: None)
  Receive Date: 20050422
  Receipt Date: 20050422
  Transmission Date: 20051028
  Serious: Yes (Hospitalization)
  Sender: FDA-Public Use
  Company Number: None

PATIENT
  Age: 56 Year
  Sex: Male
  Weight: 74.1 kg

DRUGS (2)
  1. GEMFIBROZIL [Suspect]
     Indication: HYPERTRIGLYCERIDAEMIA
     Dosage: 600 MG  BID  ORAL
     Route: 048
     Dates: start: 20040201, end: 20050201
  2. ZOCOR [Suspect]
     Indication: HYPERTRIGLYCERIDAEMIA
     Dosage: 80 MG BID  ORAL
     Route: 048
     Dates: start: 20040201, end: 20050201

REACTIONS (5)
  - ALANINE AMINOTRANSFERASE INCREASED [None]
  - ASPARTATE AMINOTRANSFERASE INCREASED [None]
  - BLOOD CREATINE PHOSPHOKINASE INCREASED [None]
  - HAEMATURIA [None]
  - MUSCULOSKELETAL PAIN [None]
